FAERS Safety Report 4640150-8 (Version None)
Quarter: 2005Q2

REPORT INFORMATION
  Report Type: 
  Country: None (occurrence: None)
  Receive Date: 20050419
  Receipt Date: 20050408
  Transmission Date: 20051028
  Serious: Yes (Other)
  Sender: FDA-Public Use
  Company Number: 200510344BCC

PATIENT
  Age: 53 Year
  Sex: Male
  Weight: 106.5953 kg

DRUGS (3)
  1. ALEVE [Suspect]
     Indication: BACK PAIN
     Dosage: PRN
  2. VASOTEC [Concomitant]
  3. VIVATEC [Concomitant]

REACTIONS (2)
  - MYOCARDIAL INFARCTION [None]
  - UNEVALUABLE EVENT [None]
